FAERS Safety Report 15797088 (Version 1)
Quarter: 2019Q1

REPORT INFORMATION
  Report Type: Spontaneous
  Country: US (occurrence: US)
  Receive Date: 20190108
  Receipt Date: 20190108
  Transmission Date: 20190417
  Serious: No
  Sender: FDA-Public Use
  Company Number: US-AUROBINDO-AUR-APU-2018-018840

PATIENT
  Age: 45 Year
  Sex: Female

DRUGS (1)
  1. DEXTROAMPHET SACCHARAT, AMPHET ASPARTATE, DEXTROAMPHET SULFATE AND AMPHET SULFAT [Suspect]
     Active Substance: AMPHETAMINE ASPARTATE\AMPHETAMINE SULFATE\DEXTROAMPHETAMINE SACCHARATE\DEXTROAMPHETAMINE SULFATE
     Indication: PRODUCT USED FOR UNKNOWN INDICATION
     Dosage: 1 TABLET EVERY MORNING AND HALF TABLET IN THE AFTER NOON.
     Route: 065
     Dates: start: 20180228, end: 20180319

REACTIONS (7)
  - Lip discolouration [Recovered/Resolved]
  - Lip dry [Recovered/Resolved]
  - Memory impairment [Recovered/Resolved]
  - Eye disorder [Recovered/Resolved]
  - Stomatitis [Recovered/Resolved]
  - Muscle twitching [Recovered/Resolved]
  - Oral discomfort [Recovered/Resolved]

NARRATIVE: CASE EVENT DATE: 20180228
